FAERS Safety Report 15419075 (Version 2)
Quarter: 2018Q4

REPORT INFORMATION
  Report Type: Report from Study
  Country: US (occurrence: US)
  Receive Date: 20180924
  Receipt Date: 20181122
  Transmission Date: 20190204
  Serious: Yes (Hospitalization, Other)
  Sender: FDA-Public Use
  Company Number: US-B.I. PHARMACEUTICALS,INC./RIDGEFIELD-2018-BI-046356

PATIENT
  Age: 85 Year
  Sex: Male
  Weight: 87.54 kg

DRUGS (2)
  1. OFEV [Suspect]
     Active Substance: NINTEDANIB
     Route: 065
  2. OFEV [Suspect]
     Active Substance: NINTEDANIB
     Indication: IDIOPATHIC PULMONARY FIBROSIS
     Route: 048
     Dates: start: 20180824, end: 20180914

REACTIONS (6)
  - Headache [Unknown]
  - Hypertension [Recovered/Resolved]
  - Abdominal discomfort [Unknown]
  - Transient ischaemic attack [Recovered/Resolved]
  - Peroneal nerve palsy [Recovered/Resolved]
  - Vertigo [Unknown]

NARRATIVE: CASE EVENT DATE: 20180905
